FAERS Safety Report 13591451 (Version 1)
Quarter: 2017Q2

REPORT INFORMATION
  Report Type: Spontaneous
  Country: AU (occurrence: AU)
  Receive Date: 20170530
  Receipt Date: 20170530
  Transmission Date: 20170830
  Serious: Yes (Hospitalization, Other)
  Sender: FDA-Public Use
  Company Number: AU-PFIZER INC-2017231854

PATIENT
  Age: 81 Year
  Sex: Female

DRUGS (7)
  1. EPINEPHRINE. [Suspect]
     Active Substance: EPINEPHRINE
     Dosage: 0.04 UG/KG, UNK
  2. NOREPINEPHRINE BITARTRATE. [Suspect]
     Active Substance: NOREPINEPHRINE BITARTRATE
     Dosage: 1 UG/KG, UNK
  3. EPINEPHRINE. [Suspect]
     Active Substance: EPINEPHRINE
     Dosage: 0.4 UG/KG, UNK
  4. METARAMINOL [Concomitant]
     Active Substance: METARAMINOL
     Dosage: 4 MG, UNK
  5. EPINEPHRINE. [Suspect]
     Active Substance: EPINEPHRINE
     Dosage: 0.2 UG/KG, UNK
  6. EPINEPHRINE. [Suspect]
     Active Substance: EPINEPHRINE
     Dosage: 0.1 UG/KG, UNK
  7. NOREPINEPHRINE BITARTRATE. [Suspect]
     Active Substance: NOREPINEPHRINE BITARTRATE
     Dosage: NORADRENALINE STABILIZED BETWEEN 0.2 MCG/KG/MIN AND 0.36 MCG/KG/MIN

REACTIONS (2)
  - Anterior spinal artery syndrome [Not Recovered/Not Resolved]
  - Hyperlactacidaemia [Unknown]
